FAERS Safety Report 4295953-9 (Version None)
Quarter: 2004Q1

REPORT INFORMATION
  Report Type: 
  Country: None (occurrence: None)
  Receive Date: 20040212
  Receipt Date: 20040130
  Transmission Date: 20041129
  Serious: Yes (Hospitalization)
  Sender: FDA-Public Use
  Company Number: 2004AP00532

PATIENT
  Age: 68 Year
  Sex: Male

DRUGS (2)
  1. DIPRIVAN [Suspect]
     Indication: SEDATION
     Dosage: 20 ML /HR IV
     Route: 042
     Dates: start: 20040120, end: 20040121
  2. DIPRIVAN [Suspect]
     Indication: SEDATION
     Dosage: 17 ML /HR IV
     Route: 042
     Dates: start: 20040101, end: 20040129

REACTIONS (2)
  - DEPRESSED LEVEL OF CONSCIOUSNESS [None]
  - RESTLESSNESS [None]
